FAERS Safety Report 18742072 (Version 2)
Quarter: 2021Q1

REPORT INFORMATION
  Report Type: Spontaneous
  Country: US (occurrence: US)
  Receive Date: 20210114
  Receipt Date: 20210303
  Transmission Date: 20210419
  Serious: No
  Sender: FDA-Public Use
  Company Number: US-PFIZER INC-2021022529

PATIENT
  Age: 25 Year
  Sex: Female

DRUGS (1)
  1. IBRANCE [Suspect]
     Active Substance: PALBOCICLIB
     Indication: BREAST CANCER FEMALE
     Dosage: 125 MG, CYCLIC (1 TABLET ON DAYS 1?21, THEN 7 DAYS OFF WITH FOOD AND REPEAT)
     Route: 048
     Dates: start: 202008

REACTIONS (1)
  - Vomiting [Unknown]
